FAERS Safety Report 5724888-7 (Version None)
Quarter: 2008Q2

REPORT INFORMATION
  Report Type: 
  Country: None (occurrence: None)
  Receive Date: 20080429
  Receipt Date: 20080418
  Transmission Date: 20081010
  Serious: Yes (Other)
  Sender: FDA-Public Use
  Company Number: 2008SP006848

PATIENT
  Age: 32 Year
  Sex: Female
  Weight: 49 kg

DRUGS (2)
  1. DESLORATADINE [Suspect]
     Indication: NASOPHARYNGITIS
     Dosage: 5 MG; QD; PO
     Route: 048
     Dates: start: 20080128, end: 20080315
  2. NASACORT [Concomitant]

REACTIONS (7)
  - AMNESIA [None]
  - ASTHENIA [None]
  - DIZZINESS [None]
  - EPILEPSY [None]
  - FATIGUE [None]
  - MEMORY IMPAIRMENT [None]
  - MIGRAINE [None]
